FAERS Safety Report 20724550 (Version 1)
Quarter: 2022Q2

REPORT INFORMATION
  Report Type: Spontaneous
  Country: US (occurrence: None)
  Receive Date: 20220418
  Receipt Date: 20220418
  Transmission Date: 20220721
  Serious: Yes (Other)
  Sender: FDA-Public Use
  Company Number: None

PATIENT
  Age: 24 Year
  Sex: Female
  Weight: 96.75 kg

DRUGS (1)
  1. PRIVIGEN [Suspect]
     Active Substance: HUMAN IMMUNOGLOBULIN G
     Indication: Autonomic neuropathy
     Dosage: FREQUENCY : WEEKLY;?
     Route: 042

REACTIONS (4)
  - Infusion related reaction [None]
  - Headache [None]
  - Neck pain [None]
  - Vomiting [None]

NARRATIVE: CASE EVENT DATE: 20220415
